FAERS Safety Report 10571486 (Version 1)
Quarter: 2014Q4

REPORT INFORMATION
  Report Type: Spontaneous
  Country: US (occurrence: US)
  Receive Date: 20141107
  Receipt Date: 20141107
  Transmission Date: 20150529
  Serious: No
  Sender: FDA-Public Use
  Company Number: US-GLAXOSMITHKLINE-US2014GSK006597

PATIENT
  Age: 56 Year
  Sex: Female

DRUGS (1)
  1. ABREVA [Suspect]
     Active Substance: DOCOSANOL
     Indication: ORAL HERPES
     Dosage: UNK, TID
     Route: 061
     Dates: start: 20141009, end: 20141013

REACTIONS (4)
  - Application site swelling [Not Recovered/Not Resolved]
  - Drug administration error [Unknown]
  - Application site erythema [Not Recovered/Not Resolved]
  - Oral herpes [Not Recovered/Not Resolved]
